FAERS Safety Report 5598798-2 (Version None)
Quarter: 2008Q1

REPORT INFORMATION
  Report Type: 
  Country: None (occurrence: None)
  Receive Date: 20080117
  Receipt Date: 20080111
  Transmission Date: 20080703
  Serious: Yes (Death)
  Sender: FDA-Public Use
  Company Number: 2007SP023410

PATIENT
  Age: 48 Year
  Sex: Male
  Weight: 98.4306 kg

DRUGS (14)
  1. PROVENTIAL HFA (ALBUTEROL SULFATE (INHALATION) (90 MCG) [Suspect]
     Indication: DRUG USE FOR UNKNOWN INDICATION
     Dosage: ;PO
     Route: 048
  2. REQUIP [Concomitant]
  3. NASONEX [Concomitant]
  4. VIAGRA [Concomitant]
  5. SIMVASTATIN [Concomitant]
  6. WELLBUTRIN [Concomitant]
  7. LISINOPRIL [Concomitant]
  8. HYDROCHLOROTHIAZIDE [Concomitant]
  9. PREVACID [Concomitant]
  10. ZYRTEC [Concomitant]
  11. AZMACORT [Concomitant]
  12. ALBUTEROL [Concomitant]
  13. METHADONE HCL [Concomitant]
  14. LORTAB [Concomitant]

REACTIONS (1)
  - DEATH [None]
